FAERS Safety Report 6263014-5 (Version None)
Quarter: 2009Q3

REPORT INFORMATION
  Report Type: 
  Country: None (occurrence: None)
  Receive Date: 20090710
  Receipt Date: 20090630
  Transmission Date: 20100115
  Serious: Yes (Death)
  Sender: FDA-Public Use
  Company Number: US-BIOGENIDEC-2009BI015591

PATIENT
  Age: 63 Year
  Sex: Female

DRUGS (3)
  1. AVONEX [Suspect]
     Indication: MULTIPLE SCLEROSIS
     Route: 030
     Dates: start: 19960101, end: 19960101
  2. BOTOX [Concomitant]
     Indication: DRUG USE FOR UNKNOWN INDICATION
     Dates: end: 20080822
  3. PILLS (NOS) [Concomitant]
     Indication: GENERAL SYMPTOM
     Dates: end: 20080822

REACTIONS (5)
  - BLINDNESS [None]
  - MALAISE [None]
  - MOBILITY DECREASED [None]
  - MULTIPLE SCLEROSIS RELAPSE [None]
  - PNEUMONIA [None]
